FAERS Safety Report 5156806-7 (Version None)
Quarter: 2006Q4

REPORT INFORMATION
  Report Type: 
  Country: None (occurrence: None)
  Receive Date: 20061115
  Receipt Date: 20061107
  Transmission Date: 20070319
  Serious: Yes (Hospitalization, Other)
  Sender: FDA-Public Use
  Company Number: 2006132807

PATIENT
  Age: 20 Year
  Sex: Female

DRUGS (5)
  1. ZOLOFT [Suspect]
     Dosage: ORAL
     Route: 048
  2. PALGIN (AMINOPHENAZONE, CAFFEINE, GUARANA PHENACETIN, PHENAZONE) [Suspect]
     Dosage: ORAL
     Route: 048
  3. DIAZEPAM [Suspect]
     Dosage: ORAL
     Route: 048
  4. AMITRIPTYLINE HCL [Suspect]
     Dosage: ORAL
     Route: 048
  5. ETHYL LOFLAZEPATE (ETHYL LOFLAZEPATE) [Suspect]
     Dosage: ORAL
     Route: 048

REACTIONS (3)
  - DIABETES INSIPIDUS [None]
  - OVERDOSE [None]
  - POLYURIA [None]
